FAERS Safety Report 7902841-2 (Version None)
Quarter: 2011Q4

REPORT INFORMATION
  Report Type: 
  Country: None (occurrence: None)
  Receive Date: 20111109
  Receipt Date: 20111031
  Transmission Date: 20120403
  Serious: Yes (Hospitalization)
  Sender: FDA-Public Use
  Company Number: AU-BRISTOL-MYERS SQUIBB COMPANY-16204943

PATIENT
  Sex: Female

DRUGS (3)
  1. AVAPRO [Suspect]
     Dosage: ALSO TAKEN ON 2006
  2. MAGNESIUM [Suspect]
     Dates: start: 20060101
  3. VITAMIN D [Suspect]
     Dosage: TABS
     Dates: start: 20110101, end: 20110101

REACTIONS (4)
  - MUSCULAR WEAKNESS [None]
  - MALAISE [None]
  - DIZZINESS [None]
  - FEELING ABNORMAL [None]
